FAERS Safety Report 5416880-7 (Version None)
Quarter: 2007Q3

REPORT INFORMATION
  Report Type: 
  Country: None (occurrence: None)
  Receive Date: 20070718
  Receipt Date: 20060830
  Transmission Date: 20080115
  Serious: Yes (Hospitalization, Other)
  Sender: FDA-Public Use
  Company Number: 2006057651

PATIENT
  Age: 42 Year
  Sex: Male
  Weight: 147.419 kg

DRUGS (6)
  1. CELEBREX [Suspect]
     Indication: ARTHRITIS
     Dosage: ORAL
  2. ASPIRIN [Concomitant]
  3. OXYCONTIN [Concomitant]
  4. CODEINE SUL TAB [Concomitant]
  5. ULTRAM [Concomitant]
  6. TEMOVATE [Concomitant]

REACTIONS (2)
  - ARTERIAL OCCLUSIVE DISEASE [None]
  - MYOCARDIAL INFARCTION [None]
